FAERS Safety Report 4757358-3 (Version None)
Quarter: 2005Q3

REPORT INFORMATION
  Report Type: 
  Country: None (occurrence: None)
  Receive Date: 20050831
  Receipt Date: 20050819
  Transmission Date: 20060218
  Serious: Yes (Hospitalization)
  Sender: FDA-Public Use
  Company Number: FR-JNJFOC-20050804902

PATIENT
  Age: 88 Year
  Sex: Female

DRUGS (6)
  1. RISPERDAL [Suspect]
     Indication: DRUG USE FOR UNKNOWN INDICATION
     Dosage: 0.5 TABLET DAILY (STRENGTH UNKNOWN).
     Route: 048
  2. NIDREL [Concomitant]
     Indication: ESSENTIAL HYPERTENSION
     Route: 065
  3. TEGRETOL [Concomitant]
     Indication: FACIAL NEURALGIA
     Route: 065
  4. TRIATEC [Concomitant]
     Indication: ESSENTIAL HYPERTENSION
     Route: 065
  5. MINISINTROM [Concomitant]
     Indication: CARDIAC FLUTTER
     Route: 065
  6. MINISINTROM [Concomitant]
     Indication: ATRIAL FIBRILLATION
     Route: 065

REACTIONS (2)
  - BRONCHITIS [None]
  - HAEMATOMA [None]
